FAERS Safety Report 12390277 (Version 1)
Quarter: 2016Q2

REPORT INFORMATION
  Report Type: Spontaneous
  Country: ES (occurrence: ES)
  Receive Date: 20160520
  Receipt Date: 20160520
  Transmission Date: 20160815
  Serious: Yes (Life-Threatening, Hospitalization)
  Sender: FDA-Public Use
  Company Number: ES-TEVA-660347ISR

PATIENT
  Age: 33 Year
  Sex: Female

DRUGS (2)
  1. DRETINELLE 0.02MG/3MG 28 COMPRIMIDOS RECUBIERTOS CON PELICULA EFG, 28 [Suspect]
     Active Substance: DROSPIRENONE\ETHINYL ESTRADIOL
     Dosage: DRETINELLE 0.02MG ETHINYLESTRADIOL/3MG DROSPIRENONE EFG FILM-COATED TABLETS, 28 TABLETS
     Route: 048
     Dates: start: 201407, end: 20141027
  2. ESCITALOPRAM SANDOZ 10 MG COMPRIMIDOS BUCODISPERSABLES EFG, 28 COMPRIM [Concomitant]
     Indication: DEPRESSION
     Dosage: 10 MILLIGRAM DAILY;
     Route: 048

REACTIONS (2)
  - Subarachnoid haemorrhage [Unknown]
  - Cerebral venous thrombosis [Recovered/Resolved]

NARRATIVE: CASE EVENT DATE: 20141019
